FAERS Safety Report 9229101 (Version 1)
Quarter: 2013Q2

REPORT INFORMATION
  Report Type: Spontaneous
  Country: CA (occurrence: CA)
  Receive Date: 20130412
  Receipt Date: 20130412
  Transmission Date: 20140414
  Serious: Yes (Death)
  Sender: FDA-Public Use
  Company Number: CA-BAXTER-2013BAX012065

PATIENT
  Age: 78 Year
  Sex: Male

DRUGS (1)
  1. DIANEAL PD4 SOLUTION WITH 1.5% DEXTROSE AND 2.5 MEQ/L CALCIUM [Suspect]
     Indication: PERITONEAL DIALYSIS
     Route: 033
     Dates: start: 20130224, end: 20130324

REACTIONS (4)
  - Congestive cardiomyopathy [Fatal]
  - Ischaemic cardiomyopathy [Fatal]
  - Therapy cessation [Fatal]
  - Peritonitis bacterial [Unknown]
